FAERS Safety Report 22534541 (Version 3)
Quarter: 2024Q4

REPORT INFORMATION
  Report Type: Report from Study
  Country: CA (occurrence: CA)
  Receive Date: 20230608
  Receipt Date: 20241224
  Transmission Date: 20250114
  Serious: Yes (Other)
  Sender: TAKEDA
  Company Number: CA-TAKEDA-2016TUS023445

PATIENT
  Age: 38 Year
  Sex: Female

DRUGS (16)
  1. VEDOLIZUMAB [Suspect]
     Active Substance: VEDOLIZUMAB
     Indication: Colitis ulcerative
     Dosage: 300 MILLIGRAM
  2. VEDOLIZUMAB [Suspect]
     Active Substance: VEDOLIZUMAB
     Dosage: 300 MILLIGRAM
  3. VEDOLIZUMAB [Suspect]
     Active Substance: VEDOLIZUMAB
     Dosage: 300 MILLIGRAM
  4. VEDOLIZUMAB [Suspect]
     Active Substance: VEDOLIZUMAB
     Dosage: 300 MILLIGRAM, Q4WEEKS
     Dates: start: 20180329
  5. VEDOLIZUMAB [Suspect]
     Active Substance: VEDOLIZUMAB
     Dosage: 300 MILLIGRAM, Q4WEEKS
  6. VEDOLIZUMAB [Suspect]
     Active Substance: VEDOLIZUMAB
     Dosage: 300 MILLIGRAM, Q6WEEKS
     Dates: start: 20180914
  7. VEDOLIZUMAB [Suspect]
     Active Substance: VEDOLIZUMAB
     Dosage: 300 MILLIGRAM, Q4WEEKS
     Dates: start: 20190222
  8. VEDOLIZUMAB [Suspect]
     Active Substance: VEDOLIZUMAB
     Dosage: 300 MILLIGRAM, Q4WEEKS
  9. VEDOLIZUMAB [Suspect]
     Active Substance: VEDOLIZUMAB
     Indication: Colitis ulcerative
     Dosage: 108 MILLIGRAM, Q2WEEKS
     Dates: start: 20220202
  10. Salofalk [Concomitant]
     Dosage: UNK
  11. MESALAMINE [Concomitant]
     Active Substance: MESALAMINE
     Dosage: UNK
  12. MICRONOR [Concomitant]
     Active Substance: NORETHINDRONE
     Dosage: UNK
  13. CALCIUM [Concomitant]
     Active Substance: CALCIUM
     Dosage: UNK
  14. IRON [Concomitant]
     Active Substance: IRON
     Dosage: UNK
  15. XARELTO [Concomitant]
     Active Substance: RIVAROXABAN
     Dosage: UNK
  16. PURINETHOL [Concomitant]
     Active Substance: MERCAPTOPURINE
     Dosage: 75 MILLIGRAM

REACTIONS (18)
  - Haematochezia [Unknown]
  - Weight increased [Unknown]
  - Dry skin [Unknown]
  - Abdominal discomfort [Not Recovered/Not Resolved]
  - Gastrointestinal inflammation [Unknown]
  - Defaecation urgency [Unknown]
  - Off label use [Unknown]
  - Product storage error [Unknown]
  - Drug delivery system issue [Unknown]
  - Device leakage [Unknown]
  - Device malfunction [Unknown]
  - Incorrect dose administered [Unknown]
  - Rhinorrhoea [Unknown]
  - Erythema [Not Recovered/Not Resolved]
  - Nasopharyngitis [Unknown]
  - Fatigue [Recovered/Resolved]
  - Headache [Recovered/Resolved]
  - Pruritus [Not Recovered/Not Resolved]

NARRATIVE: CASE EVENT DATE: 20161201
